FAERS Safety Report 5611945-9 (Version None)
Quarter: 2008Q1

REPORT INFORMATION
  Report Type: 
  Country: None (occurrence: None)
  Receive Date: 20080204
  Receipt Date: 20080125
  Transmission Date: 20080703
  Serious: Yes (Hospitalization)
  Sender: FDA-Public Use
  Company Number: PHNU2008DE00727

PATIENT

DRUGS (1)
  1. VOLTAREN [Suspect]
     Indication: OSTEOARTHRITIS

REACTIONS (2)
  - JOINT ARTHROPLASTY [None]
  - LARGE INTESTINE CARCINOMA [None]
